FAERS Safety Report 5782839-3 (Version None)
Quarter: 2008Q2

REPORT INFORMATION
  Report Type: 
  Country: None (occurrence: None)
  Receive Date: 20080619
  Receipt Date: 20080609
  Transmission Date: 20081010
  Serious: Yes (Hospitalization, Other)
  Sender: FDA-Public Use
  Company Number: 2007AP001488

PATIENT
  Age: 65 Year
  Sex: Female

DRUGS (4)
  1. PRAVASTATIN SODIUM [Suspect]
     Indication: BLOOD CHOLESTEROL INCREASED
     Dosage: 20 MG; QD; PO
     Route: 048
     Dates: start: 20070619, end: 20070802
  2. PRAVASTATIN SODIUM [Concomitant]
  3. EZETIMIBE [Concomitant]
  4. CELECOXIB [Concomitant]

REACTIONS (3)
  - BACK PAIN [None]
  - HEART RATE IRREGULAR [None]
  - PAIN IN EXTREMITY [None]
